FAERS Safety Report 19469586 (Version 3)
Quarter: 2021Q3

REPORT INFORMATION
  Report Type: Spontaneous
  Country: US (occurrence: US)
  Receive Date: 20210629
  Receipt Date: 20210706
  Transmission Date: 20211014
  Serious: No
  Sender: FDA-Public Use
  Company Number: US-TEVA-2021-US-1923422

PATIENT
  Sex: Female

DRUGS (10)
  1. TYLENOL [Suspect]
     Active Substance: ACETAMINOPHEN
     Indication: PAIN IN EXTREMITY
  2. AMOXICILLIN. [Suspect]
     Active Substance: AMOXICILLIN
     Indication: COUGH
     Route: 065
  3. ADVIL [Suspect]
     Active Substance: IBUPROFEN
     Indication: PAIN IN EXTREMITY
  4. AMOXICILLIN. [Suspect]
     Active Substance: AMOXICILLIN
     Indication: PAIN IN EXTREMITY
  5. ADVIL [Suspect]
     Active Substance: IBUPROFEN
     Indication: MUSCULAR WEAKNESS
     Route: 065
  6. ADVIL [Suspect]
     Active Substance: IBUPROFEN
     Indication: COUGH
  7. AMOXICILLIN. [Suspect]
     Active Substance: AMOXICILLIN
     Indication: MUSCULAR WEAKNESS
     Route: 065
  8. TYLENOL [Suspect]
     Active Substance: ACETAMINOPHEN
     Indication: MUSCULAR WEAKNESS
     Route: 065
  9. TYLENOL [Suspect]
     Active Substance: ACETAMINOPHEN
     Indication: COUGH
  10. PFIZER?BIONTECH COVID?19 VACCINE [Concomitant]
     Active Substance: TOZINAMERAN
     Dosage: FIRST DOSE, RIGHT SHOULDER
     Route: 065
     Dates: start: 20210523

REACTIONS (1)
  - Drug ineffective [Unknown]
